FAERS Safety Report 18826619 (Version 1)
Quarter: 2021Q1

REPORT INFORMATION
  Report Type: Spontaneous
  Country: US (occurrence: US)
  Receive Date: 20210202
  Receipt Date: 20210202
  Transmission Date: 20210419
  Serious: Yes (Hospitalization, Other)
  Sender: FDA-Public Use
  Company Number: US-REGENERON PHARMACEUTICALS, INC.-2021-15766

PATIENT

DRUGS (1)
  1. EYLEA [Suspect]
     Active Substance: AFLIBERCEPT
     Indication: EYE SWELLING
     Dosage: FIRST INJECTION, MONTHLY
     Route: 031
     Dates: start: 20201217, end: 20201217

REACTIONS (5)
  - Pneumonia [Unknown]
  - Cardiac disorder [Unknown]
  - Weight decreased [Unknown]
  - Product dose omission issue [Unknown]
  - Urinary tract disorder [Unknown]

NARRATIVE: CASE EVENT DATE: 20210114
